FAERS Safety Report 9729731 (Version 1)
Quarter: 2013Q4

REPORT INFORMATION
  Report Type: Spontaneous
  Country: US (occurrence: US)
  Receive Date: 20131204
  Receipt Date: 20131204
  Transmission Date: 20140711
  Serious: No
  Sender: FDA-Public Use
  Company Number: US-GILEAD-2009-0021892

PATIENT
  Sex: Female
  Weight: 63.5 kg

DRUGS (15)
  1. LETAIRIS [Suspect]
     Indication: PULMONARY ARTERIAL HYPERTENSION
     Route: 048
     Dates: start: 20090506
  2. METOLAZONE [Concomitant]
  3. FUROSEMIDE [Concomitant]
  4. VYTORIN [Concomitant]
  5. REVATIO [Concomitant]
  6. SYNTHROID [Concomitant]
  7. POTASSIUM CHLORIDE [Concomitant]
  8. HYDROXYUREA [Concomitant]
  9. DETROL LA [Concomitant]
  10. MULTIVITAMIN [Concomitant]
  11. VITAMIN B6 [Concomitant]
  12. FOLIC ACID [Concomitant]
  13. PRILOSEC [Concomitant]
  14. LEXAPRO [Concomitant]
  15. MOTRIN [Concomitant]

REACTIONS (3)
  - Ocular hyperaemia [Not Recovered/Not Resolved]
  - Eye pruritus [Not Recovered/Not Resolved]
  - Eyelid oedema [Not Recovered/Not Resolved]
